FAERS Safety Report 9558361 (Version 2)
Quarter: 2014Q2

REPORT INFORMATION
  Report Type: Spontaneous
  Country: US (occurrence: US)
  Receive Date: 20130926
  Receipt Date: 20140509
  Transmission Date: 20141212
  Serious: Yes (Death, Hospitalization, Disabling, Other)
  Sender: FDA-Public Use
  Company Number: US-009507513-1309USA012805

PATIENT
  Sex: Male
  Weight: 97.51 kg

DRUGS (3)
  1. JANUVIA [Suspect]
     Indication: TYPE 2 DIABETES MELLITUS
     Dosage: 50 MG, QD
     Route: 048
     Dates: start: 20071101
  2. NOVOLOG [Concomitant]
     Dosage: 100 U/ML
  3. LANTUS [Concomitant]
     Indication: TYPE 2 DIABETES MELLITUS
     Dosage: 100 UNK, UNK

REACTIONS (28)
  - Pancreatic carcinoma [Fatal]
  - Sepsis [Unknown]
  - Hyperglycaemic hyperosmolar nonketotic syndrome [Unknown]
  - Hyperglycaemia [Unknown]
  - Renal failure acute [Unknown]
  - Pancreatitis [Unknown]
  - Diabetic gastroparesis [Unknown]
  - Hepatic steatosis [Unknown]
  - Hepatic neoplasm [Unknown]
  - Oesophagitis [Unknown]
  - Blood alkaline phosphatase increased [Unknown]
  - Diastolic dysfunction [Unknown]
  - Occult blood positive [Unknown]
  - Tachycardia [Unknown]
  - Hypotension [Unknown]
  - Pneumonia aspiration [Unknown]
  - Anuria [Unknown]
  - Renal tubular necrosis [Unknown]
  - Hyperlipidaemia [Unknown]
  - Hypertension [Unknown]
  - Diabetic neuropathy [Unknown]
  - Peripheral vascular disorder [Unknown]
  - Ischaemic cardiomyopathy [Unknown]
  - Diabetic retinopathy [Unknown]
  - Tachycardia [Unknown]
  - Renal cyst [Unknown]
  - Bile duct obstruction [Unknown]
  - Blood creatinine increased [Unknown]
